FAERS Safety Report 9465651 (Version 8)
Quarter: 2014Q4

REPORT INFORMATION
  Report Type: Report from Study
  Country: MX (occurrence: MX)
  Receive Date: 20130820
  Receipt Date: 20141008
  Transmission Date: 20150529
  Serious: Yes (Hospitalization, Disabling, Other)
  Sender: FDA-Public Use
  Company Number: PHHY2013MX088206

PATIENT
  Age: 26 Year
  Sex: Female

DRUGS (7)
  1. GILENYA [Suspect]
     Active Substance: FINGOLIMOD HYDROCHLORIDE
     Dosage: 0.5 MG, QD
     Route: 048
     Dates: start: 20140205
  2. SERTRALIN//SERTRALINE HYDROCHLORIDE [Concomitant]
     Indication: MOOD ALTERED
  3. ZOLPIDEM [Concomitant]
     Active Substance: ZOLPIDEM\ZOLPIDEM TARTRATE
     Indication: SLEEP DISORDER
     Dosage: 1 DF, DAILY
     Dates: start: 201401
  4. TAMARINE [Concomitant]
     Indication: CONSTIPATION
  5. GILENYA [Suspect]
     Active Substance: FINGOLIMOD HYDROCHLORIDE
     Indication: MULTIPLE SCLEROSIS
     Dosage: 0.5 MG, QD
     Route: 048
     Dates: start: 201305, end: 201308
  6. SERTRALIN//SERTRALINE HYDROCHLORIDE [Concomitant]
     Indication: FEELING OF RELAXATION
     Dosage: UNK
     Dates: start: 2013
  7. CLONAZEPAM. [Concomitant]
     Active Substance: CLONAZEPAM
     Indication: SLEEP DISORDER
     Dosage: 1 DF, DAILY
     Dates: start: 2014

REACTIONS (27)
  - Post procedural complication [Recovered/Resolved]
  - Anaemia [Recovered/Resolved]
  - Mood altered [Recovered/Resolved]
  - Swelling [Recovered/Resolved]
  - Syncope [Recovering/Resolving]
  - Multiple sclerosis relapse [Recovering/Resolving]
  - Suffocation feeling [Not Recovered/Not Resolved]
  - Asthenia [Recovering/Resolving]
  - Hypoaesthesia [Recovered/Resolved]
  - Head discomfort [Recovered/Resolved]
  - Chest pain [Not Recovered/Not Resolved]
  - Visual acuity reduced [Recovered/Resolved]
  - Back pain [Recovering/Resolving]
  - Headache [Recovering/Resolving]
  - Pain in extremity [Not Recovered/Not Resolved]
  - Inflammation [Not Recovered/Not Resolved]
  - Fall [Recovered/Resolved]
  - Constipation [Recovered/Resolved]
  - Paraesthesia [Not Recovered/Not Resolved]
  - Depression [Recovered/Resolved]
  - Menstruation delayed [Recovered/Resolved]
  - Weight fluctuation [Unknown]
  - Tremor [Recovering/Resolving]
  - Gastritis [Recovered/Resolved]
  - Body temperature increased [Not Recovered/Not Resolved]
  - Nervousness [Recovered/Resolved]
  - Muscle spasms [Recovered/Resolved]

NARRATIVE: CASE EVENT DATE: 201306
